FAERS Safety Report 18116613 (Version 1)
Quarter: 2020Q3

REPORT INFORMATION
  Report Type: Spontaneous
  Country: GB (occurrence: GB)
  Receive Date: 20200805
  Receipt Date: 20200805
  Transmission Date: 20201103
  Serious: Yes (Other)
  Sender: FDA-Public Use
  Company Number: GB-ANIPHARMA-2020-UK-000158

PATIENT
  Age: 54 Year
  Sex: Female

DRUGS (8)
  1. ANASTROZOLE. [Suspect]
     Active Substance: ANASTROZOLE
     Indication: OVARIAN CANCER STAGE III
     Route: 048
     Dates: start: 201612
  2. PACLITAXEL. [Suspect]
     Active Substance: PACLITAXEL
     Dosage: CHEMOTHERAPY X 3 CYCLES / DOSE TEXT: COMPLETED 6 CYCLES OF CHEMOTHERAPY / DOSE TEXT:
     Route: 065
     Dates: start: 200906
  3. TAMOXIFEN [Suspect]
     Active Substance: TAMOXIFEN
     Route: 048
     Dates: start: 201401
  4. CARBOPLATIN. [Suspect]
     Active Substance: CARBOPLATIN
     Dosage: : CARBOPLATIN CHEMOTHERAPY 8 CYCLES / DOSE TEXT: COMPLETED 6 CYCLES OF CHEMOTHERAPY /
     Route: 065
     Dates: start: 201512
  5. TOPOTECAN [Suspect]
     Active Substance: TOPOTECAN HYDROCHLORIDE
     Dosage: UNK (COMPLETED 6 CYCLES PALLIATIVE TOPOTECAN CHEMOTHERAPY)
     Route: 065
     Dates: start: 202003
  6. LETROZOLE. [Suspect]
     Active Substance: LETROZOLE
     Route: 065
     Dates: start: 201506, end: 201511
  7. CAELYX [Suspect]
     Active Substance: DOXORUBICIN HYDROCHLORIDE
     Route: 065
     Dates: end: 200908
  8. GEMCITABINE. [Suspect]
     Active Substance: GEMCITABINE
     Route: 065
     Dates: start: 201512

REACTIONS (2)
  - Ovarian cancer stage IV [Unknown]
  - Product use in unapproved indication [Unknown]

NARRATIVE: CASE EVENT DATE: 201612
